FAERS Safety Report 4646950-2 (Version None)
Quarter: 2005Q2

REPORT INFORMATION
  Report Type: 
  Country: None (occurrence: None)
  Receive Date: 20050331
  Receipt Date: 20050211
  Transmission Date: 20051028
  Serious: No
  Sender: FDA-Public Use
  Company Number: 05P-163-0290355-00

PATIENT
  Age: 62 Year
  Sex: Female
  Weight: 77.1115 kg

DRUGS (10)
  1. HUMIRA [Suspect]
     Indication: RHEUMATOID ARTHRITIS
     Dosage: 40 MG, ONCE, SUBCUTANEOUS
     Route: 058
     Dates: start: 20050210, end: 20050210
  2. METHOTREXATE SODIUM [Concomitant]
  3. FOLIC ACID [Concomitant]
  4. PREDNISONE [Concomitant]
  5. CELECOXIB [Concomitant]
  6. ESTRACE [Concomitant]
  7. LEVOTHYROXINE SODIUM [Concomitant]
  8. MULTIVITAMIN [Concomitant]
  9. PENTASA [Concomitant]
  10. HUMABID E [Concomitant]

REACTIONS (8)
  - CHEILITIS [None]
  - HEART RATE INCREASED [None]
  - INJECTION SITE ERYTHEMA [None]
  - PRURITUS [None]
  - RASH [None]
  - SWOLLEN TONGUE [None]
  - URTICARIA [None]
  - WHEEZING [None]
